FAERS Safety Report 18570896 (Version 1)
Quarter: 2020Q4

REPORT INFORMATION
  Report Type: Spontaneous
  Country: US (occurrence: US)
  Receive Date: 20201202
  Receipt Date: 20201202
  Transmission Date: 20210114
  Serious: No
  Sender: FDA-Public Use
  Company Number: US-ROCHE-2697510

PATIENT
  Age: 2 Year
  Sex: Female

DRUGS (1)
  1. EVRYSDI [Suspect]
     Active Substance: RISDIPLAM
     Indication: SPINAL MUSCULAR ATROPHY
     Dosage: ROUTE: THROUGH A FEEDING TUBE
     Route: 050
     Dates: start: 20201002

REACTIONS (1)
  - Dermatitis diaper [Recovered/Resolved]

NARRATIVE: CASE EVENT DATE: 20201004
